FAERS Safety Report 7905900-3 (Version None)
Quarter: 2011Q4

REPORT INFORMATION
  Report Type: 
  Country: None (occurrence: None)
  Receive Date: 20111108
  Receipt Date: 20111031
  Transmission Date: 20120403
  Serious: Yes (Other)
  Sender: FDA-Public Use
  Company Number: PI-06155

PATIENT
  Age: 30 Year
  Sex: Female

DRUGS (1)
  1. CHLORAPREP [Suspect]
     Indication: PREOPERATIVE CARE
     Dosage: 26ML, ONCE, TOPICAL
     Route: 061
     Dates: start: 20111031

REACTIONS (1)
  - ANAPHYLACTIC REACTION [None]
